FAERS Safety Report 16698299 (Version 2)
Quarter: 2019Q3

REPORT INFORMATION
  Report Type: Spontaneous
  Country: US (occurrence: US)
  Receive Date: 20190813
  Receipt Date: 20190821
  Transmission Date: 20191004
  Serious: Yes (Hospitalization)
  Sender: FDA-Public Use
  Company Number: US-TEVA-2019-US-1090594

PATIENT
  Age: 38 Year
  Sex: Female

DRUGS (27)
  1. OXYCODONE HYDROCHLORIDE. [Suspect]
     Active Substance: OXYCODONE HYDROCHLORIDE
     Indication: CANCER PAIN
     Dosage: 240 MILLIGRAM DAILY; AS NEEDED. FORMULATION: IMMEDIATE RELEASE
     Route: 065
  2. DULOXETINE. [Suspect]
     Active Substance: DULOXETINE
     Indication: CANCER PAIN
     Route: 065
  3. MIDAZOLAM [Suspect]
     Active Substance: MIDAZOLAM HYDROCHLORIDE
     Indication: SEDATION
     Dosage: MULTIPLE 8MG BOLUSES
     Route: 050
  4. CHLORPROMAZINE. [Suspect]
     Active Substance: CHLORPROMAZINE
     Indication: MAJOR DEPRESSION
     Route: 065
  5. DOXORUBICIN [Suspect]
     Active Substance: DOXORUBICIN
     Indication: NEUROENDOCRINE TUMOUR
     Route: 065
  6. GABAPENTIN. [Suspect]
     Active Substance: GABAPENTIN
     Indication: CANCER PAIN
     Route: 065
  7. LORAZEPAM. [Suspect]
     Active Substance: LORAZEPAM
     Indication: ANXIETY
     Dosage: 4.5 MILLIGRAM DAILY;
     Route: 042
  8. OXYCODONE HYDROCHLORIDE. [Suspect]
     Active Substance: OXYCODONE HYDROCHLORIDE
     Dosage: 360 MILLIGRAM DAILY; AS NEEDED. FORMULATION: IMMEDIATE RELEASE
     Route: 065
  9. ETOPOSIDE. [Suspect]
     Active Substance: ETOPOSIDE
     Indication: NEUROENDOCRINE TUMOUR
     Route: 065
  10. PEMBROLIZUMAB. [Suspect]
     Active Substance: PEMBROLIZUMAB
     Indication: NEUROENDOCRINE TUMOUR
     Route: 065
  11. SERTRALINE [Suspect]
     Active Substance: SERTRALINE HYDROCHLORIDE
     Indication: MAJOR DEPRESSION
     Route: 065
  12. KETAMINE [Suspect]
     Active Substance: KETAMINE
     Dosage: REINITIATED AT 0.2 MG/KG/H AND WAS SLOWLY TITRATED UP BY 0.1 MG/KG/H TO 0.5 MG/ KG/H OVER THE NEX...
     Route: 050
  13. DEXAMETHASONE. [Concomitant]
     Active Substance: DEXAMETHASONE
     Dosage: 12 MILLIGRAM DAILY;
     Route: 042
  14. STREPTOZOCIN [Suspect]
     Active Substance: STREPTOZOCIN
     Indication: NEUROENDOCRINE TUMOUR
     Route: 065
  15. METHADONE [Suspect]
     Active Substance: METHADONE HYDROCHLORIDE
     Indication: CANCER PAIN
     Route: 048
  16. MIRTAZAPINE. [Suspect]
     Active Substance: MIRTAZAPINE
     Indication: MAJOR DEPRESSION
     Route: 065
  17. OXYCODONE CONTINUOUS RELEASE [Suspect]
     Active Substance: OXYCODONE
     Indication: CANCER PAIN
     Dosage: AS NEEDED. FORMULATION: IMMEDIATE RELEASE
     Route: 065
  18. HYDROMORPHONE [Suspect]
     Active Substance: HYDROMORPHONE
     Indication: CANCER PAIN
     Dosage: 72 MILLIGRAM DAILY; AS NEEDED
     Route: 065
  19. HYDROMORPHONE [Suspect]
     Active Substance: HYDROMORPHONE
     Dosage: REDUCED TO 0.7 MG/H
     Route: 041
  20. CARBOPLATIN. [Suspect]
     Active Substance: CARBOPLATIN
     Indication: NEUROENDOCRINE TUMOUR
     Route: 065
  21. METHADONE [Suspect]
     Active Substance: METHADONE HYDROCHLORIDE
     Indication: CANCER PAIN
     Dosage: WITH A GOAL TO TITRATE TO 30 MG EVERY 8 HOURS OVER 5 DAYS
     Route: 048
  22. KETAMINE [Suspect]
     Active Substance: KETAMINE
     Indication: HYPERAESTHESIA
     Dosage: 4.8 MG/KG DAILY;
     Route: 050
  23. MIDAZOLAM [Suspect]
     Active Substance: MIDAZOLAM HYDROCHLORIDE
     Indication: DELIRIUM TREMENS
     Dosage: INITIAL DOSAGE NOT STATED AND TITRATED TO 4 MG/H
     Route: 050
  24. HYDROMORPHONE [Suspect]
     Active Substance: HYDROMORPHONE
     Dosage: BASAL INFUSION RATE OF 1.5 MG/H AND 2MG DEMAND DOSE EVERY 15 MINUTES AS NEEDED
     Route: 041
  25. HYDROMORPHONE [Suspect]
     Active Substance: HYDROMORPHONE
     Dosage: EFFECTIVE BOLUS DOSE WAS PROVIDED [DOSE NOT STATED], THEN TWO HYDROMORPHONE 4MG IV BOLUS RESCUE D...
     Route: 040
  26. FLUOROURACIL. [Suspect]
     Active Substance: FLUOROURACIL
     Indication: NEUROENDOCRINE TUMOUR
     Route: 065
  27. KETAMINE [Suspect]
     Active Substance: KETAMINE
     Dosage: 0.1-0.2 MG/KG/H (LOW DOSE); INFUSION
     Route: 065

REACTIONS (2)
  - Drug ineffective [Unknown]
  - Hyperaesthesia [Recovering/Resolving]
